FAERS Safety Report 9706629 (Version 6)
Quarter: 2014Q2

REPORT INFORMATION
  Report Type: Spontaneous
  Country: US (occurrence: US)
  Receive Date: 20131125
  Receipt Date: 20140624
  Transmission Date: 20141212
  Serious: Yes (Hospitalization, Other)
  Sender: FDA-Public Use
  Company Number: US-JNJFOC-20131109982

PATIENT
  Age: 68 Year
  Sex: Female
  Weight: 79.83 kg

DRUGS (22)
  1. XARELTO [Suspect]
     Indication: DEEP VEIN THROMBOSIS
     Route: 048
     Dates: start: 20131014, end: 20131021
  2. XARELTO [Suspect]
     Indication: CEREBROVASCULAR ACCIDENT PROPHYLAXIS
     Route: 048
     Dates: start: 20131014, end: 20131021
  3. XARELTO [Suspect]
     Indication: ATRIAL FIBRILLATION
     Route: 048
     Dates: start: 20131014, end: 20131021
  4. AMIODARON [Concomitant]
     Indication: ATRIAL FIBRILLATION
     Route: 065
  5. PEPCID [Concomitant]
     Indication: GASTROOESOPHAGEAL REFLUX DISEASE
     Route: 048
  6. TRICOR [Concomitant]
     Indication: HYPERCHOLESTEROLAEMIA
     Dosage: IN THE MORNING
     Route: 065
  7. LASIX [Concomitant]
     Indication: CARDIAC FAILURE CONGESTIVE
     Route: 048
  8. CALCIUM 600+D [Concomitant]
     Route: 065
  9. BABY ASPIRIN [Concomitant]
     Route: 065
  10. ZOCOR [Concomitant]
     Dosage: AT NIGHT
     Route: 048
  11. POTASSIUM CHLORIDE [Concomitant]
     Route: 048
  12. SPIRONOLACTONE [Concomitant]
     Dosage: AT NIGHT
     Route: 065
  13. TYLENOL [Concomitant]
     Indication: PAIN
     Dosage: EVERY 4 HOURS
     Route: 048
  14. CORDARONE [Concomitant]
     Route: 048
  15. NORCO [Concomitant]
     Indication: PAIN
     Dosage: 1-2 TABLETS EVERY 4-6 HOURS
     Route: 048
  16. ZEBETA [Concomitant]
     Indication: PAIN
     Dosage: IN THE MORNING
     Route: 048
  17. PLAVIX [Concomitant]
     Dosage: IN THE MORNING
     Route: 048
  18. PRINIVIL [Concomitant]
     Indication: HYPERTENSION
     Route: 048
  19. MULTIPLEVITAMIN [Concomitant]
     Dosage: IN THE MORNING
     Route: 065
  20. NITROGLYCERIN [Concomitant]
     Route: 065
  21. NITROSTAT [Concomitant]
     Route: 060
  22. COUMADIN [Concomitant]
     Route: 048
     Dates: start: 20131021

REACTIONS (8)
  - Deep vein thrombosis [Recovering/Resolving]
  - Arterial thrombosis [Recovering/Resolving]
  - Anaemia [Unknown]
  - Drug ineffective [Unknown]
  - Pulmonary embolism [Recovering/Resolving]
  - International normalised ratio increased [Unknown]
  - Inappropriate schedule of drug administration [Unknown]
  - Headache [Unknown]
